FAERS Safety Report 9702782 (Version 3)
Quarter: 2013Q4

REPORT INFORMATION
  Report Type: Spontaneous
  Country: US (occurrence: US)
  Receive Date: 20131121
  Receipt Date: 20131217
  Transmission Date: 20140711
  Serious: Yes (Other)
  Sender: FDA-Public Use
  Company Number: US-GLAXOSMITHKLINE-A1050336A

PATIENT
  Sex: Male

DRUGS (1)
  1. RYTHMOL SR [Suspect]
     Indication: CARDIOVASCULAR DISORDER
     Dosage: 225MG UNKNOWN
     Route: 065
     Dates: start: 20110428

REACTIONS (2)
  - Cardiac operation [Unknown]
  - Nasopharyngitis [Unknown]
